FAERS Safety Report 6993618-3 (Version None)
Quarter: 2010Q3

REPORT INFORMATION
  Report Type: 
  Country: None (occurrence: None)
  Receive Date: 20100917
  Receipt Date: 20071220
  Transmission Date: 20110219
  Serious: Yes (Other)
  Sender: FDA-Public Use
  Company Number: US-ASTRAZENECA-2007UW06152

PATIENT
  Age: 19509 Day
  Sex: Female
  Weight: 79.4 kg

DRUGS (12)
  1. SEROQUEL [Suspect]
     Indication: SLEEP DISORDER
     Dosage: 25-100 MG
     Route: 048
     Dates: start: 20000518, end: 20060511
  2. SEROQUEL [Suspect]
     Route: 048
     Dates: start: 20000801, end: 20060411
  3. HYDROCHLOROTHIAZIDE [Concomitant]
     Route: 048
     Dates: start: 20000912
  4. K-DUR [Concomitant]
     Route: 048
     Dates: start: 20000912
  5. LIPITOR [Concomitant]
     Route: 048
     Dates: start: 20000912
  6. ZESTRIL [Concomitant]
     Route: 048
     Dates: start: 20000912
  7. EFFEXOR [Concomitant]
     Route: 048
     Dates: start: 20000912
  8. WELLBUTRIN [Concomitant]
     Route: 048
     Dates: start: 20000912
  9. PREMPHASE 14/14 [Concomitant]
     Dosage: 1 TABLETS DAILY
     Route: 048
     Dates: start: 20000912
  10. GLYBURIDE [Concomitant]
     Route: 048
     Dates: start: 20020610
  11. ATIVAN [Concomitant]
     Route: 048
     Dates: start: 20000912
  12. ZYPREXA [Concomitant]
     Route: 048
     Dates: start: 19990923

REACTIONS (3)
  - DIABETES MELLITUS [None]
  - DIABETES MELLITUS INADEQUATE CONTROL [None]
  - TYPE 2 DIABETES MELLITUS [None]
